FAERS Safety Report 6086404-2 (Version None)
Quarter: 2009Q1

REPORT INFORMATION
  Report Type: 
  Country: None (occurrence: None)
  Receive Date: 20090217
  Receipt Date: 20090202
  Transmission Date: 20090719
  Serious: Yes (Death)
  Sender: FDA-Public Use
  Company Number: CHPA2009US01802

PATIENT
  Age: 58 Year
  Sex: Female

DRUGS (5)
  1. ACETAMINOPHEN AND DIPHENHYDRAMINE HYDROCHLORIDE [Suspect]
     Dosage: 385 TABLETS, WITHIN APPROX. 12 HOURS, ORAL
     Route: 048
  2. ALPRAZOLAM [Suspect]
     Dosage: 0.25 MG, 480 TABLETS WITHIN APPROX. 12 HOURS, ORAL
     Route: 048
  3. ZOLPIDEM [Suspect]
     Dosage: 10 MG, 90 TABLETS WITHIN APPROX. 12 HOURS, ORAL
     Route: 048
  4. RISPERIDONE [Suspect]
     Dosage: 0.5 MG, 9 TABLETS WITHIN APPROX. 12 HOURS, ORAL
     Route: 048
  5. FLUVOXAMINE MALEATE [Suspect]
     Dosage: 100 MG, 134 TABLETS WITHIN APPROX. 12 HOURS, ORAL
     Route: 048

REACTIONS (12)
  - BLOOD CHLORIDE DECREASED [None]
  - BLOOD CREATINE PHOSPHOKINASE INCREASED [None]
  - BLOOD PRESSURE DECREASED [None]
  - BLOOD SODIUM DECREASED [None]
  - BUNDLE BRANCH BLOCK LEFT [None]
  - BUNDLE BRANCH BLOCK RIGHT [None]
  - COMA [None]
  - COMPLETED SUICIDE [None]
  - METABOLIC ACIDOSIS [None]
  - MULTIPLE DRUG OVERDOSE [None]
  - MYDRIASIS [None]
  - PUPILLARY LIGHT REFLEX TESTS ABNORMAL [None]
